FAERS Safety Report 9818279 (Version 4)
Quarter: 2014Q2

REPORT INFORMATION
  Report Type: Spontaneous
  Country: GB (occurrence: GB)
  Receive Date: 20140115
  Receipt Date: 20140414
  Transmission Date: 20141212
  Serious: Yes (Hospitalization)
  Sender: FDA-Public Use
  Company Number: GB-AMGEN-GBRSP2014001563

PATIENT
  Age: 72 Year
  Sex: Female

DRUGS (15)
  1. ARANESP [Suspect]
     Indication: NEPHROGENIC ANAEMIA
     Dosage: 100 MUG, QWK
     Route: 058
     Dates: start: 20131014
  2. ALLOPURINOL [Suspect]
     Indication: GOUT
     Dosage: 300 MG, QD
     Route: 048
     Dates: start: 20131101, end: 20140110
  3. LANSOPRAZOLE [Suspect]
     Indication: PRODUCT USED FOR UNKNOWN INDICATION
     Dosage: 30 MG, QD
     Route: 048
     Dates: start: 20131101, end: 20140110
  4. INDAPAMIDE [Concomitant]
     Dosage: 2.5 MG, QD
     Route: 048
  5. FUROSEMIDE [Concomitant]
     Indication: DYSPNOEA
     Dosage: 80 MG, QD
     Route: 048
  6. FUROSEMIDE [Concomitant]
     Indication: FLUID OVERLOAD
  7. SALBUTAMOL [Concomitant]
     Dosage: 2 DF, AS NECESSARY
  8. RAMIPRIL [Concomitant]
     Dosage: 10 MG, QD
     Route: 048
  9. ASPIRIN [Concomitant]
     Dosage: 75 MG, QD
     Route: 048
  10. SIMVASTATIN [Concomitant]
     Dosage: 40 MG, QD
     Route: 048
  11. DOSULEPIN [Concomitant]
     Dosage: 75 MG, QD
     Route: 048
  12. SERETIDE [Concomitant]
     Dosage: 2 DF, BID
  13. TIOTROPIUM [Concomitant]
     Dosage: 18 MG, QD
  14. AMINOPHYLLINE [Concomitant]
     Dosage: 225 MG, BID
     Route: 048
  15. NOVOMIX [Concomitant]
     Dosage: 42 UNIT, BID
     Route: 058

REACTIONS (9)
  - Pruritus generalised [Unknown]
  - Rash erythematous [Unknown]
  - Wheezing [Unknown]
  - Eczema [Unknown]
  - Drug eruption [Unknown]
  - Lymphocytic infiltration [Unknown]
  - Parakeratosis [Unknown]
  - Skin exfoliation [Unknown]
  - Dermatitis exfoliative [Recovered/Resolved]
